FAERS Safety Report 8528687-2 (Version None)
Quarter: 2012Q3

REPORT INFORMATION
  Report Type: 
  Country: None (occurrence: None)
  Receive Date: 20120723
  Receipt Date: 20120712
  Transmission Date: 20120928
  Serious: No
  Sender: FDA-Public Use
  Company Number: 2008BI016425

PATIENT
  Age: 34 Year
  Sex: Female

DRUGS (1)
  1. TYSABRI [Suspect]
     Indication: MULTIPLE SCLEROSIS
     Route: 042
     Dates: start: 20071123

REACTIONS (4)
  - INJECTION SITE HAEMATOMA [None]
  - INFUSION SITE PAIN [None]
  - LIGAMENT SPRAIN [None]
  - CATHETER PLACEMENT [None]
